FAERS Safety Report 9980486 (Version 1)
Quarter: 2014Q1

REPORT INFORMATION
  Report Type: Spontaneous
  Country: US (occurrence: US)
  Receive Date: 20140307
  Receipt Date: 20140307
  Transmission Date: 20141002
  Serious: No
  Sender: FDA-Public Use
  Company Number: US-BIOGENIDEC-2014BI018189

PATIENT
  Age: 59 Year
  Sex: Female

DRUGS (1)
  1. TYSABRI [Suspect]
     Indication: MULTIPLE SCLEROSIS
     Route: 042
     Dates: start: 20120424

REACTIONS (14)
  - Tendonitis [Not Recovered/Not Resolved]
  - Fall [Recovered/Resolved]
  - Cholecystitis infective [Recovered/Resolved]
  - Nephrolithiasis [Not Recovered/Not Resolved]
  - Excoriation [Recovered/Resolved]
  - Head injury [Recovered/Resolved]
  - Depression [Not Recovered/Not Resolved]
  - Food poisoning [Not Recovered/Not Resolved]
  - Back pain [Recovered/Resolved with Sequelae]
  - Contusion [Recovered/Resolved]
  - Ligament sprain [Recovered/Resolved]
  - Pyrexia [Recovered/Resolved]
  - Influenza [Not Recovered/Not Resolved]
  - Vomiting [Recovered/Resolved]
